FAERS Safety Report 9348062 (Version 1)
Quarter: 2013Q2

REPORT INFORMATION
  Report Type: Spontaneous
  Country: SG (occurrence: SG)
  Receive Date: 20130614
  Receipt Date: 20130614
  Transmission Date: 20140414
  Serious: Yes (Death, Hospitalization)
  Sender: FDA-Public Use
  Company Number: SG-JNJFOC-20130601641

PATIENT
  Sex: 0

DRUGS (6)
  1. DOXORUBICIN [Suspect]
     Indication: BREAST CANCER METASTATIC
     Dosage: 50 MG/M2 OR 60 MG/M2
     Route: 042
  2. CYCLOPHOSPHAMIDE [Suspect]
     Indication: BREAST CANCER METASTATIC
     Dosage: 600 MG/M2 OR 500 MG/M2
     Route: 065
  3. FLUOROURACIL [Suspect]
     Indication: BREAST CANCER METASTATIC
     Route: 065
  4. DEXAMETHASONE [Concomitant]
     Indication: PREMEDICATION
     Dosage: 8-16 MG BOLUS
     Route: 042
  5. DEXAMETHASONE [Concomitant]
     Indication: ANTIEMETIC SUPPORTIVE CARE
     Dosage: 8-16 MG BOLUS
     Route: 048
  6. LAMIVUDINE [Concomitant]
     Indication: ANTIVIRAL PROPHYLAXIS
     Route: 065

REACTIONS (2)
  - Acute hepatic failure [Fatal]
  - Hepatitis B [Unknown]
